FAERS Safety Report 9844422 (Version 1)
Quarter: 2014Q1

REPORT INFORMATION
  Report Type: Spontaneous
  Country: US (occurrence: None)
  Receive Date: 20140123
  Receipt Date: 20140123
  Transmission Date: 20141002
  Serious: No
  Sender: FDA-Public Use
  Company Number: None

PATIENT
  Age: 44 Year
  Sex: Female
  Weight: 57.15 kg

DRUGS (1)
  1. MIRVASO [Suspect]
     Indication: ROSACEA
     Dosage: 5 PEA SIZE DABS?ONCE DAILY?APPLIED TO A SURFACE, USUALLY THE SKIN
     Route: 061
     Dates: start: 20131201, end: 20131228

REACTIONS (6)
  - Drug effect decreased [None]
  - Flushing [None]
  - Rebound effect [None]
  - Erythema [None]
  - Condition aggravated [None]
  - Photosensitivity reaction [None]
